FAERS Safety Report 8281452-6 (Version None)
Quarter: 2012Q2

REPORT INFORMATION
  Report Type: 
  Country: None (occurrence: None)
  Receive Date: 20120411
  Receipt Date: 20120411
  Transmission Date: 20120825
  Serious: No
  Sender: FDA-Public Use
  Company Number: None

PATIENT
  Age: 33 Year
  Sex: Female
  Weight: 54.4316 kg

DRUGS (1)
  1. CYMBALTA [Suspect]
     Dosage: 50MG 1 X DAY DAILY 70 DAYS CAPSULE
     Dates: start: 20110920, end: 20111125

REACTIONS (20)
  - MOOD SWINGS [None]
  - MENSTRUATION DELAYED [None]
  - WEIGHT INCREASED [None]
  - PARAESTHESIA [None]
  - MENTAL IMPAIRMENT [None]
  - PRODUCT QUALITY ISSUE [None]
  - ANGER [None]
  - NIGHTMARE [None]
  - DEPRESSION [None]
  - HEART RATE INCREASED [None]
  - LOSS OF LIBIDO [None]
  - LETHARGY [None]
  - INFLUENZA LIKE ILLNESS [None]
  - ANXIETY [None]
  - WITHDRAWAL SYNDROME [None]
  - IRRITABILITY [None]
  - ANOVULATORY CYCLE [None]
  - HYPERHIDROSIS [None]
  - HALLUCINATION [None]
  - SUICIDAL IDEATION [None]
